FAERS Safety Report 6441831-6 (Version None)
Quarter: 2009Q4

REPORT INFORMATION
  Report Type: 
  Country: None (occurrence: None)
  Receive Date: 20091116
  Receipt Date: 20090706
  Transmission Date: 20100525
  Serious: Yes (Death)
  Sender: FDA-Public Use
  Company Number: US-MEDIMMUNE-MEDI-0008329

PATIENT
  Sex: Male
  Weight: 4.937 kg

DRUGS (6)
  1. SYNAGIS [Suspect]
     Dates: start: 20090127, end: 20090326
  2. SYNAGIS [Suspect]
     Route: 030
     Dates: start: 20090127
  3. SYNAGIS [Suspect]
     Route: 030
     Dates: start: 20090226
  4. PEDIARIX [Concomitant]
     Dates: start: 20090326, end: 20090326
  5. ROTAVIRUS VACCINE [Concomitant]
     Dates: start: 20090326, end: 20090326
  6. PREVNAR [Concomitant]
     Dates: start: 20090326, end: 20090326

REACTIONS (1)
  - SUDDEN INFANT DEATH SYNDROME [None]
